FAERS Safety Report 8271228-8 (Version None)
Quarter: 2012Q2

REPORT INFORMATION
  Report Type: 
  Country: None (occurrence: None)
  Receive Date: 20120406
  Receipt Date: 20120222
  Transmission Date: 20120825
  Serious: Yes (Other)
  Sender: FDA-Public Use
  Company Number: C12-002

PATIENT
  Age: 65 Year
  Sex: Female

DRUGS (13)
  1. CEFTOBIPROLE [Concomitant]
  2. SULFAMETHOXAZOLE [Concomitant]
  3. PREDNISOLONE [Concomitant]
  4. TRIMETHOPRIM [Concomitant]
  5. ASPIRIN [Concomitant]
  6. DAPTOMYCIN [Concomitant]
  7. METOPROLOL TARTRATE [Concomitant]
  8. RIFAMPICIN [Suspect]
     Indication: ENDOCARDITIS
     Dosage: 600 MG;QD;PO
     Route: 048
  9. RIFAMPICIN [Suspect]
     Indication: OSTEOMYELITIS
     Dosage: 600 MG;QD;PO
     Route: 048
  10. GENTAMICIN [Concomitant]
  11. PERINDOPRIL ERBUMINE [Concomitant]
  12. VANCOMYCIN [Suspect]
     Indication: OSTEOMYELITIS
     Dosage: 1 GM;BID;IV
     Route: 042
  13. VANCOMYCIN [Suspect]
     Indication: ENDOCARDITIS
     Dosage: 1 GM;BID;IV
     Route: 042

REACTIONS (3)
  - FEBRILE NEUTROPENIA [None]
  - DRUG RASH WITH EOSINOPHILIA AND SYSTEMIC SYMPTOMS [None]
  - AGRANULOCYTOSIS [None]
